FAERS Safety Report 14659011 (Version 2)
Quarter: 2018Q2

REPORT INFORMATION
  Report Type: Spontaneous
  Country: US (occurrence: US)
  Receive Date: 20180320
  Receipt Date: 20180608
  Transmission Date: 20180711
  Serious: Yes (Life-Threatening, Hospitalization, Disabling, Other)
  Sender: FDA-Public Use
  Company Number: US-MYLANLABS-2018M1015722

PATIENT
  Sex: Female

DRUGS (2)
  1. THIORIDAZINE [Suspect]
     Active Substance: THIORIDAZINE
     Indication: SCHIZOPHRENIA
  2. THIORIDAZINE [Suspect]
     Active Substance: THIORIDAZINE
     Indication: AFFECTIVE DISORDER
     Dosage: 2 TABLETS AM, 4 TABLETS PM
     Dates: start: 2006, end: 201611

REACTIONS (5)
  - Disability [Recovered/Resolved]
  - Tardive dyskinesia [Recovered/Resolved]
  - Schizophrenia [Recovered/Resolved]
  - Arrhythmia [Recovered/Resolved]
  - Adverse event [Recovered/Resolved]

NARRATIVE: CASE EVENT DATE: 2006
